FAERS Safety Report 6140715-0 (Version None)
Quarter: 2009Q2

REPORT INFORMATION
  Report Type: 
  Country: None (occurrence: None)
  Receive Date: 20090402
  Receipt Date: 20090325
  Transmission Date: 20091009
  Serious: Yes (Hospitalization)
  Sender: FDA-Public Use
  Company Number: US-BIOGENIDEC-2009BI009317

PATIENT
  Age: 54 Year
  Sex: Female
  Weight: 74 kg

DRUGS (2)
  1. AVONEX [Suspect]
     Indication: MULTIPLE SCLEROSIS
     Route: 030
     Dates: start: 20010501, end: 20081101
  2. AVONEX [Suspect]
     Route: 030
     Dates: start: 20090201, end: 20090201

REACTIONS (3)
  - INFECTION [None]
  - INJECTION SITE ERYTHEMA [None]
  - SUBCUTANEOUS ABSCESS [None]
